FAERS Safety Report 7822123-7 (Version None)
Quarter: 2011Q4

REPORT INFORMATION
  Report Type: 
  Country: None (occurrence: None)
  Receive Date: 20111018
  Receipt Date: 20111011
  Transmission Date: 20120403
  Serious: Yes (Hospitalization)
  Sender: FDA-Public Use
  Company Number: AU-JNJFOC-20111002707

PATIENT
  Sex: Male
  Weight: 85 kg

DRUGS (8)
  1. ZOLADEX [Concomitant]
     Indication: HORMONE THERAPY
     Dosage: 10.8 UNSPECIFIED UNITS
     Route: 065
     Dates: start: 20090921
  2. ABIRATERONE ACETATE [Suspect]
     Route: 048
  3. ABIRATERONE ACETATE [Suspect]
     Indication: PROSTATE CANCER METASTATIC
     Route: 048
     Dates: start: 20110923
  4. ORDINE [Concomitant]
     Indication: PELVIC PAIN
     Route: 065
     Dates: start: 20110701
  5. ORDINE [Concomitant]
     Indication: BONE PAIN
     Route: 065
     Dates: start: 20110701
  6. PREDNISOLONE [Suspect]
     Indication: PROSTATE CANCER METASTATIC
     Route: 065
     Dates: start: 20110923
  7. OXYCONTIN [Concomitant]
     Indication: PELVIC PAIN
     Route: 065
     Dates: start: 20110701
  8. OXYCONTIN [Concomitant]
     Indication: BONE PAIN
     Route: 065
     Dates: start: 20110701

REACTIONS (1)
  - MYOPATHY [None]
